FAERS Safety Report 4611894-9 (Version None)
Quarter: 2005Q2

REPORT INFORMATION
  Report Type: 
  Country: None (occurrence: None)
  Receive Date: 20050308
  Receipt Date: 20041105
  Transmission Date: 20051028
  Serious: Yes (Other)
  Sender: FDA-Public Use
  Company Number: 2004UW22887

PATIENT
  Age: 61 Year
  Sex: Male
  Weight: 63.502 kg

DRUGS (5)
  1. CRESTOR [Suspect]
     Indication: BLOOD CHOLESTEROL INCREASED
     Dosage: 10 MG PO
     Route: 048
  2. CRESTOR [Suspect]
     Indication: BLOOD CHOLESTEROL INCREASED
     Dosage: 5 MG PO
     Route: 048
  3. ACETYLSALICYLIC ACID [Concomitant]
  4. VITAMIN E [Concomitant]
  5. FISH OIL [Concomitant]

REACTIONS (4)
  - DIFFICULTY IN WALKING [None]
  - JOINT STIFFNESS [None]
  - MOTOR DYSFUNCTION [None]
  - MUSCLE SPASMS [None]
